FAERS Safety Report 14258558 (Version 1)
Quarter: 2017Q4

REPORT INFORMATION
  Report Type: Spontaneous
  Country: US (occurrence: US)
  Receive Date: 20171205
  Receipt Date: 20171205
  Transmission Date: 20180321
  Serious: No
  Sender: FDA-Public Use
  Company Number: None

PATIENT
  Age: 24 Year
  Sex: Male
  Weight: 90 kg

DRUGS (3)
  1. MITRAGYNA SPECIOSA (MITRAGYNINE) [Suspect]
     Active Substance: MITRAGYNINE\HERBALS
     Indication: PAIN
     Dosage: ?          QUANTITY:2 CAPSULE(S);?
     Route: 048
     Dates: start: 20160301, end: 20171201
  2. CELEXA [Concomitant]
     Active Substance: CITALOPRAM HYDROBROMIDE
  3. STEROIDS [Concomitant]
     Active Substance: UNSPECIFIED INGREDIENT

REACTIONS (6)
  - Agitation [None]
  - Anxiety [None]
  - Hostility [None]
  - Drug withdrawal syndrome [None]
  - Physical assault [None]
  - Drug dependence [None]

NARRATIVE: CASE EVENT DATE: 20160301
